FAERS Safety Report 8983986 (Version 1)
Quarter: 2012Q4

REPORT INFORMATION
  Report Type: Spontaneous
  Country: US (occurrence: None)
  Receive Date: 20121218
  Receipt Date: 20121218
  Transmission Date: 20130627
  Serious: Yes (Other)
  Sender: FDA-Public Use
  Company Number: None

PATIENT
  Age: 64 Year
  Sex: Male
  Weight: 111.13 kg

DRUGS (1)
  1. ATORVASTATIN [Suspect]
     Dosage: 1 tablet   once daily   po
     Route: 048
     Dates: start: 20111201, end: 20121115

REACTIONS (4)
  - Product substitution issue [None]
  - Haematochezia [None]
  - Product quality issue [None]
  - Product contamination physical [None]
